FAERS Safety Report 7201177-5 (Version None)
Quarter: 2010Q4

REPORT INFORMATION
  Report Type: 
  Country: None (occurrence: None)
  Receive Date: 20101229
  Receipt Date: 20101219
  Transmission Date: 20110411
  Serious: Yes (Death, Life-Threatening, Hospitalization)
  Sender: FDA-Public Use
  Company Number: IL-CELGENEUS-082-C5013-10081222

PATIENT
  Sex: Male
  Weight: 73 kg

DRUGS (1)
  1. CC-5013 [Suspect]
     Indication: MANTLE CELL LYMPHOMA
     Route: 048
     Dates: start: 20100803, end: 20100815

REACTIONS (5)
  - MULTI-ORGAN FAILURE [None]
  - NEUTROPENIA [None]
  - PSEUDOMONAS INFECTION [None]
  - SEPTIC SHOCK [None]
  - STAPHYLOCOCCUS TEST POSITIVE [None]
